FAERS Safety Report 5874982-5 (Version None)
Quarter: 2008Q3

REPORT INFORMATION
  Report Type: 
  Country: None (occurrence: None)
  Receive Date: 20080909
  Receipt Date: 20080908
  Transmission Date: 20090109
  Serious: Yes (Death)
  Sender: FDA-Public Use
  Company Number: JP-BRISTOL-MYERS SQUIBB COMPANY-14327225

PATIENT
  Age: 63 Year
  Sex: Male

DRUGS (3)
  1. BARACLUDE [Suspect]
     Indication: PROPHYLAXIS
     Route: 048
     Dates: start: 20080402, end: 20080514
  2. AMINOLEBAN [Concomitant]
     Route: 048
     Dates: start: 20080402, end: 20080514
  3. URSO 250 [Concomitant]
     Route: 048
     Dates: start: 20080402, end: 20080514

REACTIONS (3)
  - HEPATIC CIRRHOSIS [None]
  - HEPATIC FAILURE [None]
  - HEPATIC NEOPLASM MALIGNANT [None]
